FAERS Safety Report 8380454-9 (Version None)
Quarter: 2012Q2

REPORT INFORMATION
  Report Type: 
  Country: None (occurrence: None)
  Receive Date: 20120523
  Receipt Date: 20120521
  Transmission Date: 20120825
  Serious: Yes (Other)
  Sender: FDA-Public Use
  Company Number: US-GLAXOSMITHKLINE-A0978402A

PATIENT
  Age: 68 Year
  Sex: Female

DRUGS (5)
  1. ADVAIR DISKUS 100/50 [Suspect]
     Indication: CHRONIC OBSTRUCTIVE PULMONARY DISEASE
     Dosage: 1PUFF TWICE PER DAY
     Route: 055
     Dates: start: 20070101, end: 20120503
  2. LISINOPRIL [Concomitant]
  3. SPIRIVA [Concomitant]
  4. VITAMIN TAB [Concomitant]
  5. VENTOLIN [Concomitant]

REACTIONS (2)
  - DEAFNESS [None]
  - APHONIA [None]
